FAERS Safety Report 8029886-9 (Version None)
Quarter: 2012Q1

REPORT INFORMATION
  Report Type: 
  Country: None (occurrence: None)
  Receive Date: 20120109
  Receipt Date: 20120103
  Transmission Date: 20120608
  Serious: Yes (Congenital Anomaly)
  Sender: FDA-Public Use
  Company Number: US-PFIZER INC-2011268455

PATIENT
  Sex: Female
  Weight: 3.7 kg

DRUGS (2)
  1. MULTI-VITAMINS [Concomitant]
     Dosage: 1 DAILY
     Route: 064
     Dates: end: 20080421
  2. ZOLOFT [Suspect]
     Indication: ANXIETY
     Dosage: 25 MG, 1X/DAY
     Route: 064
     Dates: start: 20070501

REACTIONS (2)
  - PREMATURE BABY [None]
  - MATERNAL EXPOSURE TIMING UNSPECIFIED [None]
